FAERS Safety Report 7585363-0 (Version None)
Quarter: 2011Q3

REPORT INFORMATION
  Report Type: 
  Country: None (occurrence: None)
  Receive Date: 20110701
  Receipt Date: 20110621
  Transmission Date: 20111222
  Serious: Yes (Other)
  Sender: FDA-Public Use
  Company Number: US-BAYER-200934271NA

PATIENT
  Age: 63 Year
  Sex: Female
  Weight: 64.399 kg

DRUGS (17)
  1. TRASYLOL [Suspect]
     Indication: AORTIC BYPASS
  2. METOPROLOL TARTRATE [Concomitant]
     Dosage: 2 MG
     Route: 042
     Dates: start: 20040204, end: 20040204
  3. NITROGLYCERIN [Concomitant]
     Dosage: 0.5 MG
     Route: 042
     Dates: start: 20040204, end: 20040204
  4. MILRINONE [Concomitant]
     Dosage: 0.325 MG, UNK
     Dates: start: 20040204
  5. RED BLOOD CELLS [Concomitant]
     Dosage: 6 UNITS
     Route: 042
     Dates: start: 20040204, end: 20040204
  6. FENTANYL [Concomitant]
     Dosage: 250 MG, UNK
     Route: 042
     Dates: start: 20040204
  7. TRASYLOL [Suspect]
     Indication: AORTIC ANEURYSM REPAIR
     Dosage: 50 ML /HR
     Route: 042
     Dates: start: 20040204, end: 20040204
  8. PHENERGAN [Concomitant]
  9. HEPARIN [Concomitant]
     Dosage: UNK
     Route: 042
     Dates: start: 20040204, end: 20040204
  10. PROTAMINE SULFATE [Concomitant]
     Dosage: UNK
     Route: 042
     Dates: start: 20040204, end: 20040204
  11. PROPOFOL [Concomitant]
     Dosage: 150 MG, UNK
     Route: 042
     Dates: start: 20040204
  12. DEMEROL [Concomitant]
  13. VERSED [Concomitant]
     Dosage: 2 MG, UNK
     Route: 042
     Dates: start: 20040204
  14. TRASYLOL [Suspect]
     Indication: ECHOCARDIOGRAM
  15. TRASYLOL [Suspect]
     Indication: AORTIC SURGERY
  16. ESMOLOL [Concomitant]
  17. RESTORIL [Concomitant]

REACTIONS (12)
  - RENAL FAILURE [None]
  - ANXIETY [None]
  - PAIN [None]
  - DEPRESSION [None]
  - UNEVALUABLE EVENT [None]
  - EMOTIONAL DISTRESS [None]
  - FEAR [None]
  - MULTI-ORGAN FAILURE [None]
  - INJURY [None]
  - NERVOUSNESS [None]
  - RENAL INJURY [None]
  - ANHEDONIA [None]
